FAERS Safety Report 19648776 (Version 3)
Quarter: 2022Q1

REPORT INFORMATION
  Report Type: Spontaneous
  Country: US (occurrence: US)
  Receive Date: 20210803
  Receipt Date: 20220131
  Transmission Date: 20220423
  Serious: Yes (Other)
  Sender: FDA-Public Use
  Company Number: US-GILEAD-2021-0542370

PATIENT
  Sex: Male
  Weight: 94.331 kg

DRUGS (17)
  1. ATRIPLA [Suspect]
     Active Substance: EFAVIRENZ\EMTRICITABINE\TENOFOVIR DISOPROXIL FUMARATE
     Indication: HIV infection
     Dosage: UNK
     Route: 048
     Dates: start: 2012
  2. TRUVADA [Suspect]
     Active Substance: EMTRICITABINE\TENOFOVIR DISOPROXIL FUMARATE
     Indication: HIV infection
     Dosage: UNK
     Route: 048
     Dates: start: 2012, end: 2015
  3. TRUVADA [Suspect]
     Active Substance: EMTRICITABINE\TENOFOVIR DISOPROXIL FUMARATE
     Dosage: UNK
     Route: 065
     Dates: start: 2015, end: 2018
  4. COMPLERA [Suspect]
     Active Substance: EMTRICITABINE\RILPIVIRINE HYDROCHLORIDE\TENOFOVIR DISOPROXIL FUMARATE
     Indication: HIV infection
     Dosage: UNK
     Route: 065
     Dates: start: 2015, end: 2018
  5. COMPLERA [Suspect]
     Active Substance: EMTRICITABINE\RILPIVIRINE HYDROCHLORIDE\TENOFOVIR DISOPROXIL FUMARATE
     Dosage: UNK
     Route: 065
     Dates: start: 2012, end: 2015
  6. COMBIVIR [Concomitant]
     Active Substance: LAMIVUDINE\ZIDOVUDINE
  7. PREZCOBIX [Concomitant]
     Active Substance: COBICISTAT\DARUNAVIR ETHANOLATE
  8. RETROVIR [Concomitant]
     Active Substance: ZIDOVUDINE
  9. SUSTIVA [Concomitant]
     Active Substance: EFAVIRENZ
  10. TIVICAY [Concomitant]
     Active Substance: DOLUTEGRAVIR SODIUM
  11. ASPIRIN [Concomitant]
     Active Substance: ASPIRIN
  12. CLOPIDOGREL [Concomitant]
     Active Substance: CLOPIDOGREL BISULFATE
  13. COBICISTAT [Concomitant]
     Active Substance: COBICISTAT
  14. FAMOTIDINE [Concomitant]
     Active Substance: FAMOTIDINE
  15. LOSARTAN [Concomitant]
     Active Substance: LOSARTAN
  16. METOPROLOL [Concomitant]
     Active Substance: METOPROLOL
  17. ROSUVASTATIN [Concomitant]
     Active Substance: ROSUVASTATIN

REACTIONS (13)
  - Chronic kidney disease [Unknown]
  - Bipolar disorder [Unknown]
  - Therapeutic product effect decreased [Unknown]
  - Emotional distress [Not Recovered/Not Resolved]
  - Anhedonia [Not Recovered/Not Resolved]
  - Anxiety [Not Recovered/Not Resolved]
  - Pain [Not Recovered/Not Resolved]
  - Back pain [Not Recovered/Not Resolved]
  - Dysuria [Not Recovered/Not Resolved]
  - Blood urine present [Unknown]
  - Decreased appetite [Not Recovered/Not Resolved]
  - Renal impairment [Not Recovered/Not Resolved]
  - T-lymphocyte count increased [Unknown]

NARRATIVE: CASE EVENT DATE: 20130101
